FAERS Safety Report 6942234-8 (Version None)
Quarter: 2010Q3

REPORT INFORMATION
  Report Type: 
  Country: None (occurrence: None)
  Receive Date: 20100826
  Receipt Date: 20100824
  Transmission Date: 20110219
  Serious: Yes (Other)
  Sender: FDA-Public Use
  Company Number: BR-BAYER-201015806LA

PATIENT
  Age: 57 Year
  Sex: Female
  Weight: 50 kg

DRUGS (8)
  1. NEXAVAR [Suspect]
     Indication: HEPATIC NEOPLASM MALIGNANT
     Dosage: 2 TABLETS / MORNING
     Route: 048
     Dates: start: 20100401
  2. NEXAVAR [Suspect]
     Dosage: 2 TABLETS 2 TIMES / DAY
     Route: 048
     Dates: start: 20100301, end: 20100401
  3. SULFAT FERROSO [Concomitant]
     Indication: ANAEMIA
     Dosage: 2 TABLETS / DAY
     Route: 048
     Dates: start: 20080101
  4. ALDACTONE [Concomitant]
     Indication: LIVER DISORDER
     Dosage: 2 TABLETS / DAY
     Route: 048
     Dates: start: 20080101
  5. LASIX [Concomitant]
     Indication: FLUID RETENTION
     Dosage: 2 TABLETS / DAY
     Route: 048
     Dates: start: 20080101
  6. OMEPRAZOLE [Concomitant]
     Indication: GASTRIC DISORDER
     Dosage: 2 TABLETS / DAY
     Route: 048
     Dates: start: 20080101
  7. CALCIUM CARBONATE [Concomitant]
     Indication: OSTEOPOROSIS
     Route: 048
     Dates: start: 20090101
  8. ALENIA [Concomitant]
     Indication: ASTHMA
     Route: 045
     Dates: start: 20090101

REACTIONS (5)
  - DECREASED APPETITE [None]
  - ENCEPHALOPATHY [None]
  - NAUSEA [None]
  - PYREXIA [None]
  - URINARY TRACT INFECTION [None]
